FAERS Safety Report 8342692-0 (Version None)
Quarter: 2012Q2

REPORT INFORMATION
  Report Type: 
  Country: None (occurrence: None)
  Receive Date: 20120502
  Receipt Date: 20120416
  Transmission Date: 20120825
  Serious: Yes (Hospitalization)
  Sender: FDA-Public Use
  Company Number: 2012AP001100

PATIENT
  Age: 91 Year
  Sex: Female

DRUGS (8)
  1. TRAMADOL HCL [Suspect]
     Indication: PRODUCT USED FOR UNKNOWN INDICATION
  2. ASPIRIN [Suspect]
     Indication: PLATELET AGGREGATION INHIBITION
     Dosage: 100 MG;PO;QD
     Route: 048
  3. INSULIN (INSULIN) [Concomitant]
  4. ENALAPRIL MALEATE AND HYDROCHLOROTHIAZIDE [Suspect]
     Indication: HYPERTENSION
     Dosage: PO
     Route: 048
  5. GLYBURIDE AND METFORMIN HYDROCHLORIDE [Suspect]
     Indication: TYPE 2 DIABETES MELLITUS
     Dosage: PO
     Route: 048
  6. NADROPARIN (NADROPARIN) [Suspect]
     Indication: CEREBRAL ISCHAEMIA
     Dosage: SC
     Route: 058
  7. BUPRENORPHINE [Suspect]
     Indication: PAIN
     Dosage: 35 UG;QH
  8. LEVOFLOXACIN [Suspect]
     Indication: BACTERIAL INFECTION
     Dosage: 500 MG;PO;QD
     Route: 048

REACTIONS (7)
  - CONDITION AGGRAVATED [None]
  - HYPOGLYCAEMIC COMA [None]
  - SKIN WARM [None]
  - LOCALISED INFECTION [None]
  - HYPERHIDROSIS [None]
  - DRUG INTERACTION [None]
  - ARTERIAL THROMBOSIS LIMB [None]
